FAERS Safety Report 25664535 (Version 1)
Quarter: 2025Q3

REPORT INFORMATION
  Report Type: Other
  Country: GB (occurrence: GB)
  Receive Date: 20250811
  Receipt Date: 20250811
  Transmission Date: 20251020
  Serious: Yes (Hospitalization, Other)
  Sender: GLENMARK
  Company Number: None

PATIENT
  Age: 68 Year
  Sex: Female
  Weight: 73 kg

DRUGS (8)
  1. LACOSAMIDE [Suspect]
     Active Substance: LACOSAMIDE
     Indication: Epilepsy
     Dosage: 50 MILLIGRAM, BID, EVERY 12 HOURS
     Route: 065
     Dates: end: 20250614
  2. ISOSORBIDE MONONITRATE [Concomitant]
     Active Substance: ISOSORBIDE MONONITRATE
     Indication: Myocardial infarction
     Route: 065
     Dates: start: 20250413
  3. ASPIRIN [Concomitant]
     Active Substance: ASPIRIN
     Indication: Myocardial infarction
     Route: 065
     Dates: start: 20250413
  4. GABAPENTIN [Concomitant]
     Active Substance: GABAPENTIN
     Indication: Epilepsy
     Route: 065
  5. RAMIPRIL [Concomitant]
     Active Substance: RAMIPRIL
     Indication: Hypertension
     Route: 065
  6. AMLODIPINE [Concomitant]
     Active Substance: AMLODIPINE BESYLATE
     Indication: Product used for unknown indication
     Route: 065
  7. LEVOTHYROXINE [Concomitant]
     Active Substance: LEVOTHYROXINE
     Indication: Hypothyroidism
     Route: 065
  8. BRIVARACETAM [Concomitant]
     Active Substance: BRIVARACETAM
     Indication: Epilepsy
     Route: 065

REACTIONS (5)
  - Generalised tonic-clonic seizure [Recovered/Resolved]
  - Fall [Unknown]
  - Head injury [Unknown]
  - Alanine aminotransferase abnormal [Unknown]
  - Gamma-glutamyltransferase abnormal [Unknown]

NARRATIVE: CASE EVENT DATE: 20250611
